FAERS Safety Report 5020708-7 (Version None)
Quarter: 2006Q2

REPORT INFORMATION
  Report Type: 
  Country: None (occurrence: None)
  Receive Date: 20060601
  Receipt Date: 20060517
  Transmission Date: 20061013
  Serious: Yes (Other)
  Sender: FDA-Public Use
  Company Number: 2006-BP-05628RO

PATIENT
  Age: 57 Year
  Sex: Female

DRUGS (3)
  1. METHOTREXATE [Suspect]
     Indication: RHEUMATOID ARTHRITIS
     Dosage: 10 MG PER WEEK
  2. BOSENTAN (BOSENTAN) [Suspect]
     Indication: PULMONARY HYPERTENSION
     Dosage: 62.5MG BIX 1 1 MO THEN 125MG BID, PO
     Route: 048
  3. METHYLPREDNISOLONE [Concomitant]

REACTIONS (4)
  - ARTHRITIS [None]
  - DRUG INTERACTION [None]
  - DYSPNOEA EXERTIONAL [None]
  - PULMONARY HYPERTENSION [None]
